FAERS Safety Report 13387180 (Version 2)
Quarter: 2017Q2

REPORT INFORMATION
  Report Type: Spontaneous
  Country: US (occurrence: US)
  Receive Date: 20170330
  Receipt Date: 20170413
  Transmission Date: 20170830
  Serious: No
  Sender: FDA-Public Use
  Company Number: US-INCYTE CORPORATION-2017IN002189

PATIENT
  Age: 49 Year
  Sex: Female

DRUGS (1)
  1. JAKAFI [Suspect]
     Active Substance: RUXOLITINIB
     Indication: MYELOFIBROSIS
     Dosage: 10 MG, BID
     Route: 048
     Dates: start: 20170302

REACTIONS (11)
  - Fatigue [Unknown]
  - Sinus headache [Recovered/Resolved]
  - Platelet count increased [Unknown]
  - Energy increased [Unknown]
  - Sleep disorder [Unknown]
  - Increased appetite [Unknown]
  - Fluid retention [Unknown]
  - Drug dose omission [Unknown]
  - Asthenia [Unknown]
  - Feeling abnormal [Recovering/Resolving]
  - Weight increased [Unknown]

NARRATIVE: CASE EVENT DATE: 2017
